FAERS Safety Report 5312825-9 (Version None)
Quarter: 2007Q2

REPORT INFORMATION
  Report Type: 
  Country: None (occurrence: None)
  Receive Date: 20070430
  Receipt Date: 20070419
  Transmission Date: 20071010
  Serious: Yes (Other)
  Sender: FDA-Public Use
  Company Number: US-AMGEN-US214029

PATIENT
  Age: 83 Year
  Sex: Male
  Weight: 90.3 kg

DRUGS (1)
  1. PROCRIT [Suspect]
     Indication: RENAL FAILURE CHRONIC
     Route: 058
     Dates: start: 20020901, end: 20070220

REACTIONS (3)
  - APLASIA PURE RED CELL [None]
  - CAMPYLOBACTER INFECTION [None]
  - WALDENSTROM'S MACROGLOBULINAEMIA [None]
